FAERS Safety Report 16357545 (Version 1)
Quarter: 2019Q2

REPORT INFORMATION
  Report Type: Spontaneous
  Country: JP (occurrence: JP)
  Receive Date: 20190527
  Receipt Date: 20190527
  Transmission Date: 20190711
  Serious: Yes (Other)
  Sender: FDA-Public Use
  Company Number: JP-BRISTOL-MYERS SQUIBB COMPANY-BMS-2019-049363

PATIENT
  Sex: Female

DRUGS (1)
  1. KENACORT-A [Suspect]
     Active Substance: TRIAMCINOLONE
     Indication: ROTATOR CUFF SYNDROME
     Dosage: 20 MILLIGRAM
     Route: 014
     Dates: start: 20190410

REACTIONS (6)
  - Conjunctival haemorrhage [Unknown]
  - Injection site swelling [Unknown]
  - Pain [Unknown]
  - Hypoaesthesia [Unknown]
  - Pyrexia [Unknown]
  - Musculoskeletal stiffness [Unknown]

NARRATIVE: CASE EVENT DATE: 20190410
